FAERS Safety Report 6221783-4 (Version None)
Quarter: 2009Q2

REPORT INFORMATION
  Report Type: 
  Country: None (occurrence: None)
  Receive Date: 20090610
  Receipt Date: 20090601
  Transmission Date: 20091009
  Serious: Yes (Other)
  Sender: FDA-Public Use
  Company Number: US-AMGEN-QUU349539

PATIENT
  Sex: Male

DRUGS (2)
  1. ENBREL [Suspect]
     Indication: RHEUMATOID ARTHRITIS
     Route: 058
     Dates: start: 20090520
  2. LEFLUNOMIDE [Concomitant]

REACTIONS (6)
  - ADRENAL DISORDER [None]
  - BONE MARROW DISORDER [None]
  - IMPAIRED HEALING [None]
  - PAIN [None]
  - ROTATOR CUFF SYNDROME [None]
  - SCAB [None]
